FAERS Safety Report 21864965 (Version 1)
Quarter: 2023Q1

REPORT INFORMATION
  Report Type: Report from Study
  Country: AU (occurrence: AU)
  Receive Date: 20230116
  Receipt Date: 20230116
  Transmission Date: 20230418
  Serious: Yes (Hospitalization)
  Sender: FDA-Public Use
  Company Number: AU-CELGENE-AUS-20210405893

PATIENT
  Age: 77 Year
  Sex: Male
  Weight: 70.10 kg

DRUGS (38)
  1. DEXAMETHASONE [Suspect]
     Active Substance: DEXAMETHASONE
     Indication: Plasma cell myeloma
     Route: 048
     Dates: start: 20210413, end: 20210413
  2. DEXAMETHASONE [Suspect]
     Active Substance: DEXAMETHASONE
     Route: 048
  3. POMALIDOMIDE [Suspect]
     Active Substance: POMALIDOMIDE
     Indication: Plasma cell myeloma
     Route: 048
     Dates: start: 20210330, end: 20210419
  4. ISATUXIMAB [Suspect]
     Active Substance: ISATUXIMAB
     Indication: Plasma cell myeloma
     Route: 042
     Dates: start: 20191029, end: 20191029
  5. ISATUXIMAB [Suspect]
     Active Substance: ISATUXIMAB
     Route: 042
     Dates: start: 20210413, end: 20210413
  6. ISATUXIMAB [Suspect]
     Active Substance: ISATUXIMAB
     Dosage: 25ML/HR
     Route: 042
     Dates: start: 20191029, end: 20191029
  7. BACTRIM DS [Concomitant]
     Active Substance: SULFAMETHOXAZOLE\TRIMETHOPRIM
  8. BACTRIM DS [Concomitant]
     Active Substance: SULFAMETHOXAZOLE\TRIMETHOPRIM
     Indication: Product used for unknown indication
     Dosage: FREQUENCY TEXT: NOT PROVIDED
     Route: 065
     Dates: start: 20191112
  9. TEMAZEPAM [Concomitant]
     Active Substance: TEMAZEPAM
     Dosage: FREQUENCY TEXT: NOT PROVIDED
     Route: 065
     Dates: start: 20200121
  10. TEMAZEPAM [Concomitant]
     Active Substance: TEMAZEPAM
     Indication: Product used for unknown indication
  11. FOLIC ACID [Concomitant]
     Active Substance: FOLIC ACID
  12. FOLIC ACID [Concomitant]
     Active Substance: FOLIC ACID
     Indication: Product used for unknown indication
     Dosage: FREQUENCY TEXT: NOT PROVIDED
     Route: 065
     Dates: start: 20200121
  13. PREGABALIN [Concomitant]
     Active Substance: PREGABALIN
  14. PREGABALIN [Concomitant]
     Active Substance: PREGABALIN
     Indication: Product used for unknown indication
     Dosage: FREQUENCY TEXT: NOT PROVIDED
     Route: 065
     Dates: start: 20200929
  15. MAGNESIUM [Concomitant]
     Active Substance: MAGNESIUM
  16. MAGNESIUM [Concomitant]
     Active Substance: MAGNESIUM
     Indication: Product used for unknown indication
     Dosage: FREQUENCY TEXT: NOT PROVIDED
     Route: 065
     Dates: start: 20200916
  17. MONTELUKAST [Concomitant]
     Active Substance: MONTELUKAST SODIUM
     Indication: Prophylaxis
     Dosage: FREQUENCY TEXT: NOT PROVIDED
     Route: 048
     Dates: start: 20210119, end: 20210119
  18. MONTELUKAST [Concomitant]
     Active Substance: MONTELUKAST SODIUM
     Dosage: FREQUENCY TEXT: NOT PROVIDED
     Route: 048
     Dates: start: 20210202, end: 20210202
  19. MONTELUKAST [Concomitant]
     Active Substance: MONTELUKAST SODIUM
     Dosage: FREQUENCY TEXT: NOT PROVIDED
     Route: 048
     Dates: start: 20210302, end: 20210302
  20. MONTELUKAST [Concomitant]
     Active Substance: MONTELUKAST SODIUM
     Dosage: FREQUENCY TEXT: NOT PROVIDED
     Route: 048
     Dates: start: 20210315, end: 20210315
  21. MONTELUKAST [Concomitant]
     Active Substance: MONTELUKAST SODIUM
     Dosage: FREQUENCY TEXT: NOT PROVIDED
     Route: 048
     Dates: start: 20210330, end: 20210330
  22. MONTELUKAST [Concomitant]
     Active Substance: MONTELUKAST SODIUM
     Dosage: FREQUENCY TEXT: NOT PROVIDED
     Route: 048
     Dates: start: 20210413, end: 20210413
  23. LORATADINE [Concomitant]
     Active Substance: LORATADINE
     Indication: Prophylaxis
  24. LORATADINE [Concomitant]
     Active Substance: LORATADINE
     Dosage: FREQUENCY TEXT: NOT PROVIDED
     Route: 048
     Dates: start: 20210119, end: 20210119
  25. LORATADINE [Concomitant]
     Active Substance: LORATADINE
     Dosage: FREQUENCY TEXT: NOT PROVIDED
     Route: 048
     Dates: start: 20210202, end: 20210202
  26. LORATADINE [Concomitant]
     Active Substance: LORATADINE
     Dosage: FREQUENCY TEXT: NOT PROVIDED
     Route: 048
     Dates: start: 20210302, end: 20210302
  27. LORATADINE [Concomitant]
     Active Substance: LORATADINE
     Dosage: FREQUENCY TEXT: NOT PROVIDED
     Route: 048
     Dates: start: 20210315, end: 20210315
  28. LORATADINE [Concomitant]
     Active Substance: LORATADINE
     Dosage: FREQUENCY TEXT: NOT PROVIDED
     Route: 048
     Dates: start: 20210330, end: 20210330
  29. LORATADINE [Concomitant]
     Active Substance: LORATADINE
     Dosage: FREQUENCY TEXT: NOT PROVIDED
     Route: 048
     Dates: start: 20210413, end: 20210413
  30. RIVAROXABAN [Concomitant]
     Active Substance: RIVAROXABAN
  31. RIVAROXABAN [Concomitant]
     Active Substance: RIVAROXABAN
     Indication: Product used for unknown indication
     Dosage: FREQUENCY TEXT: NOT PROVIDED
     Route: 065
     Dates: start: 201909
  32. ZOLEDRONIC ACID [Concomitant]
     Active Substance: ZOLEDRONIC ACID
  33. FLUCONAZOLE [Concomitant]
     Active Substance: FLUCONAZOLE
  34. FLUCONAZOLE [Concomitant]
     Active Substance: FLUCONAZOLE
     Indication: Product used for unknown indication
     Dosage: FREQUENCY TEXT: NOT PROVIDED
     Route: 065
     Dates: start: 20191029
  35. VALACYCLOVIR HYDROCHLORIDE [Concomitant]
     Active Substance: VALACYCLOVIR HYDROCHLORIDE
  36. ZOLEDRONIC ACID [Concomitant]
     Active Substance: ZOLEDRONIC ACID
     Indication: Product used for unknown indication
     Dosage: FREQUENCY TEXT: NOT PROVIDED
     Route: 065
     Dates: start: 201312
  37. VALACYCLOVIR [Concomitant]
     Active Substance: VALACYCLOVIR HYDROCHLORIDE
     Indication: Product used for unknown indication
     Dosage: FREQUENCY TEXT: NOT PROVIDED
     Route: 065
     Dates: start: 20191112
  38. FILGRASTIM [Concomitant]
     Active Substance: FILGRASTIM
     Indication: Product used for unknown indication
     Dosage: FREQUENCY TEXT: NOT PROVIDED
     Route: 065
     Dates: start: 20191119

REACTIONS (2)
  - Fall [Recovering/Resolving]
  - Rib fracture [Unknown]

NARRATIVE: CASE EVENT DATE: 20210418
